FAERS Safety Report 8606155-7 (Version None)
Quarter: 2012Q3

REPORT INFORMATION
  Report Type: 
  Country: None (occurrence: None)
  Receive Date: 20120820
  Receipt Date: 20120809
  Transmission Date: 20120928
  Serious: Yes (Hospitalization, Other)
  Sender: FDA-Public Use
  Company Number: US-ASTRAZENECA-2012SE40711

PATIENT
  Age: 24 Year
  Sex: Male
  Weight: 69.9 kg

DRUGS (7)
  1. FLORIC ACID [Concomitant]
  2. LEVOTHYROXINE SODIUM [Concomitant]
  3. RISPERIDONE [Concomitant]
  4. SEROQUEL XR [Suspect]
     Indication: BIPOLAR I DISORDER
     Route: 048
     Dates: end: 20120413
  5. DEPAKOTE [Concomitant]
  6. CLONOPIN [Concomitant]
     Dosage: TWO TIMES A DAY
  7. VYCODAN [Concomitant]

REACTIONS (2)
  - HEAD INJURY [None]
  - CRANIOCEREBRAL INJURY [None]
